FAERS Safety Report 15797528 (Version 1)
Quarter: 2019Q1

REPORT INFORMATION
  Report Type: Report from Study
  Country: IN (occurrence: IN)
  Receive Date: 20190108
  Receipt Date: 20190108
  Transmission Date: 20190417
  Serious: Yes (Other)
  Sender: FDA-Public Use
  Company Number: PHHY2018IN102951

PATIENT
  Sex: Male
  Weight: 65 kg

DRUGS (3)
  1. SIMBRINZA [Suspect]
     Active Substance: BRIMONIDINE TARTRATE\BRINZOLAMIDE
     Indication: GLAUCOMA
     Dosage: BID
     Route: 047
  2. LOSAR [LOSARTAN POTASSIUM] [Suspect]
     Active Substance: LOSARTAN POTASSIUM
     Indication: BLOOD PRESSURE ABNORMAL
     Dosage: UNK
     Route: 048
  3. TRAVATAN [Suspect]
     Active Substance: TRAVOPROST
     Indication: GLAUCOMA
     Dosage: 40 UG, QD
     Route: 047

REACTIONS (5)
  - Intraocular pressure increased [Not Recovered/Not Resolved]
  - Pterygium [Unknown]
  - Somnolence [Not Recovered/Not Resolved]
  - Thyroid disorder [Not Recovered/Not Resolved]
  - Blindness [Not Recovered/Not Resolved]
